FAERS Safety Report 11862831 (Version 1)
Quarter: 2015Q4

REPORT INFORMATION
  Report Type: Spontaneous
  Country: US (occurrence: US)
  Receive Date: 20151223
  Receipt Date: 20151223
  Transmission Date: 20160305
  Serious: Yes (Hospitalization, Disabling)
  Sender: FDA-Public Use
  Company Number: US-DRREDDYS-USA/USA/15/0054866

PATIENT
  Age: 72 Year
  Sex: Male

DRUGS (2)
  1. QUETIAPINE [Concomitant]
     Active Substance: QUETIAPINE
     Indication: PRODUCT USED FOR UNKNOWN INDICATION
     Route: 065
  2. MEMANTINE HYDROCHLORIDE [Suspect]
     Active Substance: MEMANTINE HYDROCHLORIDE
     Indication: VASCULAR DEMENTIA
     Route: 065

REACTIONS (6)
  - Incoherent [Recovered/Resolved]
  - Delirium [Recovered/Resolved]
  - Executive dysfunction [Recovered/Resolved]
  - Stereotypy [Recovered/Resolved]
  - Activities of daily living impaired [Recovered/Resolved]
  - Psychomotor hyperactivity [Recovered/Resolved]
